FAERS Safety Report 7568781-6 (Version None)
Quarter: 2011Q2

REPORT INFORMATION
  Report Type: 
  Country: None (occurrence: None)
  Receive Date: 20110623
  Receipt Date: 20110614
  Transmission Date: 20111010
  Serious: Yes (Hospitalization, Disabling, Other)
  Sender: FDA-Public Use
  Company Number: US-ASTRAZENECA-2010SE01514

PATIENT
  Age: 46 Year
  Sex: Female
  Weight: 81.6 kg

DRUGS (2)
  1. SEROQUEL [Suspect]
     Indication: BIPOLAR I DISORDER
     Route: 048
     Dates: start: 20090101
  2. RISPERDEL [Concomitant]

REACTIONS (13)
  - CATARACT OPERATION [None]
  - GAIT DISTURBANCE [None]
  - PARALYSIS [None]
  - GLAUCOMA [None]
  - CARDIAC DISORDER [None]
  - INJURY [None]
  - BLINDNESS [None]
  - WEIGHT INCREASED [None]
  - FALL [None]
  - TRAUMATIC LUNG INJURY [None]
  - SUICIDAL IDEATION [None]
  - RIB FRACTURE [None]
  - CONTUSION [None]
